FAERS Safety Report 9293718 (Version 1)
Quarter: 2013Q2

REPORT INFORMATION
  Report Type: Spontaneous
  Country: DK (occurrence: ES)
  Receive Date: 20130516
  Receipt Date: 20130516
  Transmission Date: 20140414
  Serious: Yes (Hospitalization)
  Sender: FDA-Public Use
  Company Number: ES-FRI-1000045182

PATIENT
  Age: 64 Year
  Sex: Male

DRUGS (4)
  1. ESCITALOPRAM [Suspect]
     Indication: DEPRESSION
     Dosage: 20 MG
     Route: 048
     Dates: start: 20100618, end: 20120226
  2. ENALAPRIL [Concomitant]
     Indication: HYPERTENSION
     Dates: start: 2004, end: 20120226
  3. TESAVEL [Concomitant]
     Indication: DIABETES MELLITUS
     Dates: start: 20110411, end: 20120226
  4. TRANXILIUM [Concomitant]
     Indication: ANXIETY
     Dates: start: 20100215, end: 20100226

REACTIONS (3)
  - Inappropriate antidiuretic hormone secretion [Recovered/Resolved]
  - Hyperprolactinaemia [Recovered/Resolved]
  - General physical health deterioration [Recovered/Resolved]
